FAERS Safety Report 5016042-1 (Version None)
Quarter: 2006Q2

REPORT INFORMATION
  Report Type: 
  Country: None (occurrence: None)
  Receive Date: 20060531
  Receipt Date: 20060531
  Transmission Date: 20061013
  Serious: Yes (Death)
  Sender: FDA-Public Use
  Company Number: None

PATIENT
  Age: 51 Year
  Sex: Female
  Weight: 72.5755 kg

DRUGS (2)
  1. PHENERGAN HCL [Suspect]
     Dates: start: 20060523, end: 20060524
  2. PHENERGAN HCL [Suspect]
     Dates: start: 20060524, end: 20060524

REACTIONS (3)
  - CARDIAC ARREST [None]
  - DEPRESSED LEVEL OF CONSCIOUSNESS [None]
  - MEMORY IMPAIRMENT [None]
